FAERS Safety Report 17974336 (Version 1)
Quarter: 2020Q3

REPORT INFORMATION
  Report Type: Spontaneous
  Country: NL (occurrence: DK)
  Receive Date: 20200702
  Receipt Date: 20200702
  Transmission Date: 20201103
  Serious: Yes (Other)
  Sender: FDA-Public Use
  Company Number: DK-FRESENIUS KABI-FK202006565

PATIENT
  Sex: Male

DRUGS (6)
  1. CARBOPLATIN (MANUFACTURER UNKNOWN) [Suspect]
     Active Substance: CARBOPLATIN
     Dosage: UNK
     Route: 065
     Dates: start: 201705, end: 201810
  2. VINBLASTINE [Suspect]
     Active Substance: VINBLASTINE
     Indication: ASTROCYTOMA, LOW GRADE
     Dosage: UNK
     Route: 065
     Dates: start: 201702, end: 201705
  3. VINCRISTINE [Suspect]
     Active Substance: VINCRISTINE
     Dosage: UNK
     Route: 065
     Dates: start: 201411, end: 201606
  4. CARBOPLATIN (MANUFACTURER UNKNOWN) [Suspect]
     Active Substance: CARBOPLATIN
     Indication: ASTROCYTOMA, LOW GRADE
     Dosage: UNK
     Route: 065
     Dates: start: 201411, end: 201606
  5. VINCRISTINE [Suspect]
     Active Substance: VINCRISTINE
     Indication: ASTROCYTOMA, LOW GRADE
     Dosage: UNK
     Route: 065
     Dates: start: 201705, end: 201810
  6. NILOTINIB [Suspect]
     Active Substance: NILOTINIB
     Indication: ASTROCYTOMA, LOW GRADE
     Dosage: UNK
     Route: 065
     Dates: start: 201702, end: 201705

REACTIONS (7)
  - Dysphagia [Unknown]
  - Dizziness [Unknown]
  - Malignant neoplasm progression [Unknown]
  - Cranial nerve disorder [Unknown]
  - Astrocytoma, low grade [Unknown]
  - Mastication disorder [Unknown]
  - Asthenia [Unknown]
